FAERS Safety Report 13786103 (Version 1)
Quarter: 2017Q3

REPORT INFORMATION
  Report Type: Spontaneous
  Country: DE (occurrence: DE)
  Receive Date: 20170725
  Receipt Date: 20170725
  Transmission Date: 20171127
  Serious: Yes (Other)
  Sender: FDA-Public Use
  Company Number: DE-ROCHE-1967310

PATIENT
  Age: 52 Year
  Sex: Female

DRUGS (1)
  1. VALIUM [Suspect]
     Active Substance: DIAZEPAM
     Indication: PREMEDICATION
     Route: 013

REACTIONS (2)
  - Arterial occlusive disease [Unknown]
  - Incorrect route of drug administration [Unknown]
